FAERS Safety Report 6593965-3 (Version None)
Quarter: 2010Q1

REPORT INFORMATION
  Report Type: 
  Country: None (occurrence: None)
  Receive Date: 20100222
  Receipt Date: 20100213
  Transmission Date: 20100710
  Serious: Yes (Hospitalization, Other)
  Sender: FDA-Public Use
  Company Number: JP-JNJFOC-20090807410

PATIENT
  Age: 7 Decade
  Sex: Female

DRUGS (3)
  1. MICONAZOLE [Suspect]
     Route: 048
  2. MICONAZOLE [Suspect]
     Indication: ORAL CANDIDIASIS
     Dosage: FOR FEW DAYS
     Route: 048
  3. WARFARIN POTASSIUM [Interacting]
     Indication: ATRIAL FIBRILLATION
     Dosage: FOR SEVERAL YEARS
     Route: 048

REACTIONS (3)
  - DRUG INTERACTION [None]
  - HAEMATURIA [None]
  - INTERNATIONAL NORMALISED RATIO INCREASED [None]
